FAERS Safety Report 12940266 (Version 1)
Quarter: 2016Q4

REPORT INFORMATION
  Report Type: Spontaneous
  Country: US (occurrence: US)
  Receive Date: 20161115
  Receipt Date: 20161115
  Transmission Date: 20170207
  Serious: Yes (Death)
  Sender: FDA-Public Use
  Company Number: None

PATIENT
  Age: 54 Year
  Sex: Female
  Weight: 69.75 kg

DRUGS (2)
  1. LEVOFLOXACIN. [Suspect]
     Active Substance: LEVOFLOXACIN
  2. PREDNISON [Suspect]
     Active Substance: PREDNISONE
     Indication: SINUSITIS
     Dates: start: 20130924, end: 20130928

REACTIONS (1)
  - Rectal cancer metastatic [None]

NARRATIVE: CASE EVENT DATE: 20130924
